FAERS Safety Report 19094730 (Version 1)
Quarter: 2021Q2

REPORT INFORMATION
  Report Type: Spontaneous
  Country: IN (occurrence: IN)
  Receive Date: 20210405
  Receipt Date: 20210405
  Transmission Date: 20210717
  Serious: Yes (Life-Threatening, Hospitalization, Other)
  Sender: FDA-Public Use
  Company Number: IN-VALIDUS PHARMACEUTICALS LLC-IN-2021VAL000971

PATIENT
  Age: 26 Year
  Sex: Female

DRUGS (4)
  1. DIAZEPAM. [Concomitant]
     Active Substance: DIAZEPAM
     Indication: PRODUCT USED FOR UNKNOWN INDICATION
     Dosage: UNK
  2. DICLOFENAC SODIUM. [Concomitant]
     Active Substance: DICLOFENAC SODIUM
     Indication: PRODUCT USED FOR UNKNOWN INDICATION
     Dosage: UNK
  3. LIGNOCAINE WITH ADRENALINE [Concomitant]
     Active Substance: EPINEPHRINE BITARTRATE\LIDOCAINE HYDROCHLORIDE
     Indication: PRODUCT USED FOR UNKNOWN INDICATION
     Dosage: UNK
  4. CEFOTAXIME SODIUM [Suspect]
     Active Substance: CEFOTAXIME SODIUM
     Indication: PROPHYLAXIS
     Dosage: 1 G (INJECTION)
     Route: 042

REACTIONS (8)
  - Ecchymosis [Recovering/Resolving]
  - Irritability [Recovering/Resolving]
  - Anaphylactic reaction [Recovering/Resolving]
  - Disseminated intravascular coagulation [Recovering/Resolving]
  - Aggression [Recovering/Resolving]
  - Hyperhidrosis [Recovering/Resolving]
  - Cyanosis [Recovering/Resolving]
  - Skin haemorrhage [Recovering/Resolving]
